FAERS Safety Report 6112411-7 (Version None)
Quarter: 2009Q1

REPORT INFORMATION
  Report Type: 
  Country: None (occurrence: None)
  Receive Date: 20090311
  Receipt Date: 20090311
  Transmission Date: 20090719
  Serious: Yes (Hospitalization)
  Sender: FDA-Public Use
  Company Number: None

PATIENT
  Age: 74 Year
  Sex: Male

DRUGS (2)
  1. FUROSEMIDE [Suspect]
     Indication: HYPERTENSION
     Dosage: 40 MG EVERY DAY PO
     Route: 048
     Dates: start: 20080220
  2. KETOROLAC TROMETHAMINE [Suspect]
     Indication: PAIN
     Dosage: 10 MG PRN PO
     Route: 048
     Dates: start: 20090216, end: 20090222

REACTIONS (4)
  - DEHYDRATION [None]
  - HYPOPHAGIA [None]
  - RENAL FAILURE ACUTE [None]
  - URINARY TRACT OBSTRUCTION [None]
